FAERS Safety Report 8190453-8 (Version None)
Quarter: 2012Q1

REPORT INFORMATION
  Report Type: 
  Country: None (occurrence: None)
  Receive Date: 20120307
  Receipt Date: 20120229
  Transmission Date: 20120608
  Serious: Yes (Death, Other)
  Sender: FDA-Public Use
  Company Number: US-BAYER-200934395NA

PATIENT
  Age: 47 Year
  Sex: Male

DRUGS (10)
  1. MORPHINE [Concomitant]
     Indication: PAIN
     Dosage: 2.5 MG-5 MG
     Route: 042
  2. HEPARIN [Concomitant]
     Dosage: UNK
     Dates: start: 19971109, end: 19971109
  3. AMICAR [Concomitant]
     Dosage: UNK
     Dates: start: 19971109
  4. FRESH FROZEN PLASMA [Concomitant]
  5. TRASYLOL [Suspect]
     Indication: AORTIC DISSECTION
     Dosage: 2 MILLION UNITS PUMP PRIME
     Dates: start: 19971109
  6. MANNITOL [Concomitant]
     Dosage: UNK
     Dates: start: 19971109, end: 19971109
  7. SODIUM BICARBONATE [Concomitant]
     Dosage: UNK
     Dates: start: 19971109, end: 19971109
  8. MAGNESIUM SULFATE [Concomitant]
     Dosage: 1 G, UNK
     Dates: start: 19971109, end: 19971109
  9. TRASYLOL [Suspect]
     Indication: ARTERIAL REPAIR
  10. LIDOCAINE [Concomitant]
     Dosage: UNK
     Dates: start: 19971109, end: 19971109

REACTIONS (14)
  - UNEVALUABLE EVENT [None]
  - MULTI-ORGAN FAILURE [None]
  - PAIN [None]
  - RENAL INJURY [None]
  - FEAR [None]
  - ANHEDONIA [None]
  - DEATH [None]
  - NERVOUSNESS [None]
  - EMOTIONAL DISTRESS [None]
  - DEPRESSION [None]
  - RENAL FAILURE [None]
  - INJURY [None]
  - ANXIETY [None]
  - DISABILITY [None]
